FAERS Safety Report 7550973-3 (Version None)
Quarter: 2011Q2

REPORT INFORMATION
  Report Type: 
  Country: None (occurrence: None)
  Receive Date: 20110616
  Receipt Date: 20110606
  Transmission Date: 20111010
  Serious: Yes (Death, Other)
  Sender: FDA-Public Use
  Company Number: BE-GENZYME-CLOF-1001646

PATIENT
  Sex: Female
  Weight: 69.2 kg

DRUGS (2)
  1. EVOLTRA [Suspect]
     Indication: ACUTE MYELOID LEUKAEMIA
     Dosage: 10 MG/M2, QD
     Route: 042
     Dates: start: 20110321
  2. EVOLTRA [Suspect]
     Dosage: 20 MG/M2, QD
     Route: 042
     Dates: end: 20110502

REACTIONS (5)
  - ACUTE RESPIRATORY DISTRESS SYNDROME [None]
  - SEPTIC SHOCK [None]
  - DEATH [None]
  - FEBRILE NEUTROPENIA [None]
  - MULTI-ORGAN FAILURE [None]
